FAERS Safety Report 9731809 (Version 1)
Quarter: 2013Q4

REPORT INFORMATION
  Report Type: Spontaneous
  Country: US (occurrence: US)
  Receive Date: 20131205
  Receipt Date: 20131205
  Transmission Date: 20140711
  Serious: No
  Sender: FDA-Public Use
  Company Number: US-ENDO PHARMACEUTICALS INC.-HCDA20120095

PATIENT
  Age: 69 Year
  Sex: Female

DRUGS (2)
  1. HYDROCODONE/ACETAMINOPHEN [Suspect]
     Indication: PAIN
     Dosage: UNKNOWN
     Route: 048
     Dates: start: 201210
  2. HYDROCODONE/ACETAMINOPHEN [Suspect]
     Indication: SHOULDER ARTHROPLASTY

REACTIONS (1)
  - Pruritus [Unknown]
